FAERS Safety Report 14179389 (Version 5)
Quarter: 2017Q4

REPORT INFORMATION
  Report Type: Report from Study
  Country: US (occurrence: US)
  Receive Date: 20171110
  Receipt Date: 20171218
  Transmission Date: 20180321
  Serious: Yes (Other)
  Sender: FDA-Public Use
  Company Number: US-PFIZER INC-2017477723

PATIENT
  Age: 78 Year
  Sex: Male

DRUGS (5)
  1. SUTENT [Suspect]
     Active Substance: SUNITINIB MALATE
     Dosage: 37.5 MG, CYCLIC (DAILY; 4 WEEKS ON - 2 WEEK OFF)
     Route: 048
     Dates: start: 20171022, end: 201711
  2. SUTENT [Suspect]
     Active Substance: SUNITINIB MALATE
     Dosage: 12.5 MG, 1X/DAY
     Route: 048
     Dates: start: 20171121
  3. SUTENT [Suspect]
     Active Substance: SUNITINIB MALATE
     Indication: RENAL CELL CARCINOMA
     Dosage: 37.5 MG, 1X/DAY
     Route: 048
     Dates: start: 20171022
  4. SUTENT [Suspect]
     Active Substance: SUNITINIB MALATE
     Dosage: 37.5 MG, 1X/DAY
     Route: 048
     Dates: start: 20171024, end: 20171106
  5. SUTENT [Suspect]
     Active Substance: SUNITINIB MALATE
     Dosage: 12.5 MG, CYCLIC (DAILY; 4 WEEKS ON - 2 WEEK OFF)
     Route: 048
     Dates: start: 201711

REACTIONS (16)
  - Nausea [Recovered/Resolved]
  - Decreased appetite [Unknown]
  - Abdominal distension [Unknown]
  - Dizziness [Recovering/Resolving]
  - Vomiting [Recovered/Resolved]
  - Dry mouth [Unknown]
  - Stomatitis [Recovering/Resolving]
  - Joint swelling [Recovering/Resolving]
  - Constipation [Unknown]
  - Abdominal pain [Recovering/Resolving]
  - Fatigue [Recovering/Resolving]
  - Dysgeusia [Unknown]
  - Pain [Unknown]
  - Pyrexia [Unknown]
  - Hiccups [Unknown]
  - Blood pressure increased [Recovering/Resolving]

NARRATIVE: CASE EVENT DATE: 2017
